FAERS Safety Report 10409889 (Version 2)
Quarter: 2014Q3

REPORT INFORMATION
  Report Type: Spontaneous
  Country: US (occurrence: US)
  Receive Date: 20140826
  Receipt Date: 20140909
  Transmission Date: 20150326
  Serious: Yes (Other)
  Sender: FDA-Public Use
  Company Number: US-B.I. PHARMACEUTICALS,INC./RIDGEFIELD-2014-BI-38993BP

PATIENT
  Age: 66 Year
  Sex: Female
  Weight: 68 kg

DRUGS (21)
  1. CARVEDILOL. [Concomitant]
     Active Substance: CARVEDILOL
     Indication: HYPERTENSION
     Dosage: 6.25 MG
     Route: 048
     Dates: start: 201312
  2. ALLOPURINOL. [Concomitant]
     Active Substance: ALLOPURINOL
     Indication: GOUT
     Dosage: 100 MG
     Route: 048
     Dates: start: 201406
  3. HYDROXYZINE [Concomitant]
     Active Substance: HYDROXYZINE\HYDROXYZINE HYDROCHLORIDE
     Indication: SKIN IRRITATION
     Route: 048
     Dates: start: 20130522
  4. SPIRIVA [Suspect]
     Active Substance: TIOTROPIUM BROMIDE MONOHYDRATE
     Dosage: 18 MCG
     Route: 048
     Dates: start: 20140820, end: 20140820
  5. ANASTROVOLE [Concomitant]
     Indication: BREAST CANCER
     Dosage: 1 MG
     Route: 048
     Dates: start: 201208
  6. COLCRYS [Concomitant]
     Active Substance: COLCHICINE
     Indication: GOUT
     Dosage: 1.2 MG
     Route: 048
     Dates: start: 201406
  7. HYDROCODONE / APAP [Concomitant]
     Indication: ARTHRITIS
     Dosage: STRENGTH: 5/ 325 MG; DAILY DOSE: 20/ 1300 MG
     Route: 048
     Dates: start: 20140730
  8. KRILL OIL WITH OMEGA [Concomitant]
     Dosage: STRENGTH: 300 MG/ 90 MG; DAILY DOSE: 300 MG/ 90 MCG
     Route: 048
     Dates: start: 2013
  9. SPIRIVA [Suspect]
     Active Substance: TIOTROPIUM BROMIDE MONOHYDRATE
     Indication: CHRONIC OBSTRUCTIVE PULMONARY DISEASE
     Dosage: 18 MCG
     Route: 055
     Dates: start: 2004
  10. NEURONTIN [Concomitant]
     Active Substance: GABAPENTIN
     Indication: ARTHRITIS
     Dosage: 600 MG
     Route: 048
     Dates: start: 20140811
  11. ALPRAZOLAM. [Concomitant]
     Active Substance: ALPRAZOLAM
     Indication: ANXIETY DISORDER
     Dosage: 0.5 MG
     Route: 048
  12. PROMETHAZINE [Concomitant]
     Active Substance: PROMETHAZINE\PROMETHAZINE HYDROCHLORIDE
     Indication: NAUSEA
     Route: 048
     Dates: start: 201208
  13. MAGNESIUM [Concomitant]
     Active Substance: MAGNESIUM
     Indication: OSTEOGENESIS IMPERFECTA
     Dosage: 1500 MG
     Route: 048
     Dates: start: 2010
  14. CRESTOR [Concomitant]
     Active Substance: ROSUVASTATIN CALCIUM
     Indication: BLOOD CHOLESTEROL INCREASED
     Dosage: 80 MG
     Route: 048
     Dates: start: 2008
  15. RANITIDINE [Concomitant]
     Active Substance: RANITIDINE\RANITIDINE HYDROCHLORIDE
     Indication: GASTROOESOPHAGEAL REFLUX DISEASE
     Dosage: 300 MG
     Route: 048
  16. CYCLOBENZAPRINE [Concomitant]
     Active Substance: CYCLOBENZAPRINE
     Indication: MUSCLE SPASMS
     Dosage: 20 MG
     Route: 048
     Dates: start: 2008
  17. ZOLOFT [Concomitant]
     Active Substance: SERTRALINE HYDROCHLORIDE
     Indication: ANXIETY DISORDER
     Dosage: 50 MG
     Route: 048
  18. SYMBICORT [Concomitant]
     Active Substance: BUDESONIDE\FORMOTEROL FUMARATE DIHYDRATE
     Indication: CHRONIC OBSTRUCTIVE PULMONARY DISEASE
     Route: 055
     Dates: start: 2006
  19. PROAIR HFA [Concomitant]
     Active Substance: ALBUTEROL SULFATE
     Indication: CHRONIC OBSTRUCTIVE PULMONARY DISEASE
     Route: 055
     Dates: start: 201309
  20. MAGNESIUM [Concomitant]
     Active Substance: MAGNESIUM
     Indication: CONSTIPATION
  21. D3 [Concomitant]
     Active Substance: 25-HYDROXYCHOLECALCIFEROL, 5-TRANS-
     Indication: OSTEOGENESIS IMPERFECTA
     Dosage: 2000 U
     Route: 048
     Dates: start: 2012

REACTIONS (30)
  - Breast cancer [Recovered/Resolved]
  - Confusional state [Not Recovered/Not Resolved]
  - Blood iron decreased [Unknown]
  - Nausea [Unknown]
  - Osteoporosis [Unknown]
  - Renal failure chronic [Unknown]
  - Wheezing [Not Recovered/Not Resolved]
  - Urinary tract infection [Unknown]
  - Osteogenesis imperfecta [Unknown]
  - Gout [Unknown]
  - Eczema [Unknown]
  - Hypertension [Unknown]
  - Gouty arthritis [Unknown]
  - Groin pain [Unknown]
  - Rash [Unknown]
  - Mass [Unknown]
  - Blood cholesterol increased [Unknown]
  - Incorrect route of drug administration [Recovered/Resolved]
  - Dysphagia [Unknown]
  - Anxiety [Unknown]
  - Arthropod bite [Unknown]
  - Essential hypertension [Unknown]
  - Hypersensitivity [Not Recovered/Not Resolved]
  - Skin irritation [Unknown]
  - Speech disorder [Unknown]
  - Gout [Unknown]
  - Muscle spasms [Unknown]
  - Oropharyngeal pain [Not Recovered/Not Resolved]
  - Hyperlipidaemia [Unknown]
  - Osteopenia [Unknown]

NARRATIVE: CASE EVENT DATE: 2008
